FAERS Safety Report 4677857-2 (Version None)
Quarter: 2005Q2

REPORT INFORMATION
  Report Type: 
  Country: None (occurrence: None)
  Receive Date: 20050527
  Receipt Date: 20050516
  Transmission Date: 20051028
  Serious: Yes (Hospitalization)
  Sender: FDA-Public Use
  Company Number: 2005BI009566

PATIENT
  Age: 74 Year
  Sex: Female
  Weight: 176 kg

DRUGS (19)
  1. ZEVALIN [Suspect]
     Indication: NON-HODGKIN'S LYMPHOMA
     Dosage: SEE IMAGE
     Route: 042
     Dates: start: 20050510, end: 20050510
  2. ZEVALIN [Suspect]
     Indication: NON-HODGKIN'S LYMPHOMA
     Dosage: SEE IMAGE
     Route: 042
     Dates: start: 20050510, end: 20050510
  3. ZEVALIN [Suspect]
     Indication: NON-HODGKIN'S LYMPHOMA
     Dosage: SEE IMAGE
     Route: 042
     Dates: start: 20050518, end: 20050518
  4. ZEVALIN [Suspect]
     Indication: NON-HODGKIN'S LYMPHOMA
     Dosage: SEE IMAGE
     Route: 042
     Dates: start: 20050518, end: 20050518
  5. RITUXIMAB [Concomitant]
  6. CYCLOPHOSPHAMIDE [Concomitant]
  7. DOXORUBICIN [Concomitant]
  8. VINCRISTINE [Concomitant]
  9. PREDNISONE TAB [Concomitant]
  10. FLUDARABINE [Concomitant]
  11. COZAAR [Concomitant]
  12. HYDROCHLOROTHIAZIDE [Concomitant]
  13. LESCOL [Concomitant]
  14. MUCINEX [Concomitant]
  15. ALBUTEROL [Concomitant]
  16. COMBIVENT [Concomitant]
  17. LORAZEPAM [Concomitant]
  18. MULTI-VITAMINS [Concomitant]
  19. SELENIUM TRACE METAL ADDITIVE [Concomitant]

REACTIONS (15)
  - BLOOD CHLORIDE DECREASED [None]
  - BLOOD GLUCOSE DECREASED [None]
  - BLOOD POTASSIUM DECREASED [None]
  - BLOOD SODIUM DECREASED [None]
  - BLOOD UREA INCREASED [None]
  - BRAIN NATRIURETIC PEPTIDE INCREASED [None]
  - CARDIAC FAILURE CONGESTIVE [None]
  - CHRONIC OBSTRUCTIVE AIRWAYS DISEASE EXACERBATED [None]
  - DYSPNOEA EXERTIONAL [None]
  - DYSPNOEA PAROXYSMAL NOCTURNAL [None]
  - ELECTROCARDIOGRAM ST SEGMENT ABNORMAL [None]
  - HAEMATOCRIT DECREASED [None]
  - MITRAL VALVE INCOMPETENCE [None]
  - SINUS TACHYCARDIA [None]
  - WHITE BLOOD CELL COUNT INCREASED [None]
